FAERS Safety Report 15131252 (Version 2)
Quarter: 2018Q3

REPORT INFORMATION
  Report Type: Spontaneous
  Country: IL (occurrence: IL)
  Receive Date: 20180711
  Receipt Date: 20180801
  Transmission Date: 20181010
  Serious: Yes (Hospitalization, Other)
  Sender: FDA-Public Use
  Company Number: IL-SA-2018SA151723

PATIENT
  Age: 73 Year
  Sex: Male

DRUGS (1)
  1. PRALUENT [Suspect]
     Active Substance: ALIROCUMAB
     Indication: PRODUCT USED FOR UNKNOWN INDICATION
     Dosage: UNK
     Route: 058
     Dates: start: 2017

REACTIONS (2)
  - Peripheral ischaemia [Unknown]
  - Low density lipoprotein increased [Recovered/Resolved]

NARRATIVE: CASE EVENT DATE: 201805
